FAERS Safety Report 5218898-6 (Version None)
Quarter: 2007Q1

REPORT INFORMATION
  Report Type: 
  Country: None (occurrence: None)
  Receive Date: 20070125
  Receipt Date: 20070122
  Transmission Date: 20070707
  Serious: Yes (Life-Threatening, Hospitalization)
  Sender: FDA-Public Use
  Company Number: GB-BRISTOL-MYERS SQUIBB COMPANY-13416326

PATIENT
  Age: 34 Year
  Sex: Male
  Weight: 90 kg

DRUGS (3)
  1. KENALOG [Suspect]
     Indication: ASTHMA
     Route: 030
     Dates: start: 20060101, end: 20060301
  2. AMINOPHYLLINE [Concomitant]
     Indication: ASTHMA
     Route: 048
  3. SERETIDE [Concomitant]
     Indication: ASTHMA
     Route: 055

REACTIONS (1)
  - HAEMATEMESIS [None]
